FAERS Safety Report 8228859-0 (Version None)
Quarter: 2012Q1

REPORT INFORMATION
  Report Type: 
  Country: None (occurrence: None)
  Receive Date: 20120322
  Receipt Date: 20120314
  Transmission Date: 20120608
  Serious: Yes (Death, Other)
  Sender: FDA-Public Use
  Company Number: US-SANOFI-AVENTIS-2012SA008536

PATIENT
  Age: 49 Year
  Sex: Male
  Weight: 90.9 kg

DRUGS (11)
  1. LOVENOX [Suspect]
     Indication: VENOUS THROMBOSIS
     Route: 058
     Dates: start: 20111207, end: 20120109
  2. ROCALTROL [Concomitant]
     Route: 048
  3. SUNITINIB MALATE [Concomitant]
     Route: 048
  4. TUMS E-X [Concomitant]
     Route: 048
  5. KLONOPIN [Concomitant]
     Dosage: AS NEED
     Route: 048
  6. LEVOTHYROXINE SODIUM [Concomitant]
     Route: 048
  7. NORCO [Concomitant]
     Indication: PAIN
     Dosage: EVERY 4-6 HOURS
  8. CALCIUM CARBONATE [Concomitant]
     Route: 048
  9. CHERATUSSIN AC [Concomitant]
     Indication: COUGH
     Dosage: PRN
     Route: 048
  10. LORAZEPAM [Concomitant]
     Indication: ANXIETY
     Dosage: EVERY 4-6 HOURS AS NEEDED
     Route: 048
     Dates: start: 20111116, end: 20120109
  11. PREDNISONE TAB [Concomitant]
     Route: 048

REACTIONS (1)
  - THYROID CANCER METASTATIC [None]
